FAERS Safety Report 15714855 (Version 1)
Quarter: 2018Q4

REPORT INFORMATION
  Report Type: Spontaneous
  Country: US (occurrence: US)
  Receive Date: 20181212
  Receipt Date: 20181212
  Transmission Date: 20190205
  Serious: Yes (Hospitalization, Other)
  Sender: FDA-Public Use
  Company Number: US-ZYDUS-030990

PATIENT
  Age: 28 Year
  Sex: Female
  Weight: 94 kg

DRUGS (2)
  1. OXYCODONE [Suspect]
     Active Substance: OXYCODONE
     Indication: PAIN
     Dosage: OXYCODONE EQUIVALENT TO 90 MME/DAY
     Route: 065
  2. HYDROMORPHONE/HYDROMORPHONE HYDROCHLORIDE [Suspect]
     Active Substance: HYDROMORPHONE
     Indication: PAIN
     Dosage: HYDROMORPHONE AS NEEDED EQUIVALENT TO UP TO 192 MME/DAY
     Route: 065

REACTIONS (2)
  - Hyperaesthesia [Recovered/Resolved]
  - Hypoxia [Not Recovered/Not Resolved]
